FAERS Safety Report 9555855 (Version 2)
Quarter: 2013Q4

REPORT INFORMATION
  Report Type: Spontaneous
  Country: US (occurrence: None)
  Receive Date: 20130724
  Receipt Date: 20131226
  Transmission Date: 20140711
  Serious: Yes (Other)
  Sender: FDA-Public Use
  Company Number: PHEH2013US011749

PATIENT
  Age: 41 Year
  Sex: Female
  Weight: 71.2 kg

DRUGS (8)
  1. GILENYA (FINGOLIMOD) CAPSULE [Suspect]
     Indication: MULTIPLE SCLEROSIS
     Route: 048
     Dates: start: 20110303
  2. CLONAZEPAM (CLONAZEPAM) (CLONAZEPAM) [Concomitant]
  3. DEXTROMETHORPHAN (DEXTROMETHORPHAN) [Concomitant]
  4. MINOCYCLINE (MINOCYCLINE) [Concomitant]
  5. GABAPENTIN (GABAPENTIN) [Concomitant]
  6. TYLENOL (PARACETAMOL) [Concomitant]
  7. AZITHROMYCIN (AZITHROMYCIN) [Concomitant]
  8. LEVOTHYROXINE (LEVOTHYROXINE) [Concomitant]

REACTIONS (2)
  - Herpes zoster [None]
  - Post herpetic neuralgia [None]
